FAERS Safety Report 13429070 (Version 1)
Quarter: 2017Q2

REPORT INFORMATION
  Report Type: Spontaneous
  Country: ES (occurrence: ES)
  Receive Date: 20170411
  Receipt Date: 20170411
  Transmission Date: 20170830
  Serious: Yes (Life-Threatening, Hospitalization, Other)
  Sender: FDA-Public Use
  Company Number: ES-ELI_LILLY_AND_COMPANY-ES201704001778

PATIENT
  Age: 53 Year
  Sex: Male

DRUGS (4)
  1. CARBOPLATINE [Concomitant]
     Active Substance: CARBOPLATIN
     Indication: LUNG ADENOCARCINOMA
     Dosage: 400 MG, CYCLICAL
     Route: 042
     Dates: start: 20161117, end: 20161117
  2. ALIMTA [Suspect]
     Active Substance: PEMETREXED DISODIUM
     Indication: LUNG ADENOCARCINOMA
     Dosage: 800 MG, UNKNOWN
     Route: 042
     Dates: start: 20161117, end: 20161117
  3. FORTECORTIN                        /00016001/ [Concomitant]
     Active Substance: DEXAMETHASONE
     Dosage: 8 MG, QD
     Route: 048
     Dates: end: 20161118
  4. FORTECORTIN                        /00016001/ [Concomitant]
     Active Substance: DEXAMETHASONE
     Indication: PRODUCT USED FOR UNKNOWN INDICATION
     Dosage: 4 MG, QD
     Route: 048
     Dates: start: 20161116

REACTIONS (22)
  - Acute kidney injury [Recovered/Resolved]
  - Pericardial effusion [Unknown]
  - Hyponatraemia [Unknown]
  - Malnutrition [Unknown]
  - Hepatitis [Recovered/Resolved]
  - Respiratory tract infection [Unknown]
  - Normochromic normocytic anaemia [Unknown]
  - Malignant neoplasm progression [Unknown]
  - Hypokalaemia [Unknown]
  - Cachexia [Unknown]
  - Sarcopenia [Unknown]
  - Thrombocytopenia [Unknown]
  - Atelectasis [Unknown]
  - Off label use [Unknown]
  - Cardiac tamponade [Recovered/Resolved]
  - Electrocardiogram QT prolonged [Unknown]
  - Hypomagnesaemia [Unknown]
  - Hepatomegaly [Unknown]
  - Pleural effusion [Unknown]
  - Ascites [Unknown]
  - Hypocalcaemia [Unknown]
  - Hypochloraemia [Unknown]

NARRATIVE: CASE EVENT DATE: 20161117
